FAERS Safety Report 15324795 (Version 1)
Quarter: 2018Q3

REPORT INFORMATION
  Report Type: Spontaneous
  Country: US (occurrence: US)
  Receive Date: 20180822
  Receipt Date: 20180822
  Transmission Date: 20181010
  Serious: Yes (Other)
  Sender: FDA-Public Use
  Company Number: None

PATIENT
  Age: 35 Year
  Sex: Female
  Weight: 50.4 kg

DRUGS (5)
  1. SUBOXONE [Concomitant]
     Active Substance: BUPRENORPHINE HYDROCHLORIDE\NALOXONE HYDROCHLORIDE
     Dates: start: 20170901
  2. PRAZOSIN 2MG CAPSULE [Concomitant]
     Dates: start: 20170209
  3. RISPERIDONE 2MG TABLET [Concomitant]
     Dates: start: 20170209
  4. BUNAVAIL [Suspect]
     Active Substance: BUPRENORPHINE HYDROCHLORIDE\NALOXONE HYDROCHLORIDE DIHYDRATE
     Indication: DRUG DEPENDENCE
     Route: 002
     Dates: start: 20180817, end: 20180820
  5. GABAPENTIN 400MG CAPSULE [Concomitant]
     Dates: start: 20180117

REACTIONS (4)
  - Rash [None]
  - Pruritus [None]
  - Swelling [None]
  - Application site reaction [None]

NARRATIVE: CASE EVENT DATE: 20180820
